FAERS Safety Report 21879185 (Version 1)
Quarter: 2023Q1

REPORT INFORMATION
  Report Type: Spontaneous
  Country: US (occurrence: None)
  Receive Date: 20230117
  Receipt Date: 20230117
  Transmission Date: 20230418
  Serious: No
  Sender: FDA-Public Use
  Company Number: None

PATIENT
  Sex: 0

DRUGS (1)
  1. FEMRING [Suspect]
     Active Substance: ESTRADIOL ACETATE

REACTIONS (3)
  - Night sweats [None]
  - Insomnia [None]
  - Feeling jittery [None]
